FAERS Safety Report 10167136 (Version 1)
Quarter: 2014Q2

REPORT INFORMATION
  Report Type: Spontaneous
  Country: US (occurrence: None)
  Receive Date: 20140508
  Receipt Date: 20140508
  Transmission Date: 20141212
  Serious: Yes (Other)
  Sender: FDA-Public Use
  Company Number: SYM-2014-20584

PATIENT
  Age: 23 Year
  Sex: Female

DRUGS (1)
  1. XENAZINE [Suspect]
     Indication: TORTICOLLIS
     Dosage: 4 IN 1 D
     Route: 048
     Dates: start: 20130305

REACTIONS (3)
  - Off label use [None]
  - Depressed mood [None]
  - Suicidal ideation [None]
